FAERS Safety Report 10967714 (Version 1)
Quarter: 2015Q1

REPORT INFORMATION
  Report Type: Spontaneous
  Country: US (occurrence: None)
  Receive Date: 20150226
  Receipt Date: 20150226
  Transmission Date: 20150721
  Serious: No
  Sender: FDA-Public Use
  Company Number: TPA2010A01047

PATIENT
  Sex: Male

DRUGS (3)
  1. INDOMETHACIN (INDOMETACIN) [Suspect]
     Active Substance: INDOMETHACIN
     Indication: PROPHYLAXIS
  2. INDOMETHACIN (INDOMETACIN) [Suspect]
     Active Substance: INDOMETHACIN
     Indication: GOUT
  3. ULORIC [Suspect]
     Active Substance: FEBUXOSTAT
     Indication: GOUT
     Route: 048

REACTIONS (1)
  - Rash [None]
